FAERS Safety Report 23920028 (Version 1)
Quarter: 2024Q2

REPORT INFORMATION
  Report Type: Spontaneous
  Country: US (occurrence: None)
  Receive Date: 20240529
  Receipt Date: 20240529
  Transmission Date: 20240716
  Serious: No
  Sender: FDA-Public Use
  Company Number: None

PATIENT
  Sex: Male

DRUGS (16)
  1. AMBRISENTAN [Suspect]
     Active Substance: AMBRISENTAN
     Indication: Pulmonary arterial hypertension
     Dosage: FREQUENCY : DAILY;?
     Route: 048
  2. TADALAFIL [Concomitant]
     Active Substance: TADALAFIL
  3. ONDANSETRON HYDROCHLORIDE [Concomitant]
     Active Substance: ONDANSETRON HYDROCHLORIDE
  4. UPTRAVI [Concomitant]
     Active Substance: SELEXIPAG
  5. LETAIRIS [Concomitant]
     Active Substance: AMBRISENTAN
  6. XANAX [Concomitant]
     Active Substance: ALPRAZOLAM
  7. INVEGA [Concomitant]
     Active Substance: PALIPERIDONE
  8. FELODIPINEEXTENDED-RELEASE TABLETS [Concomitant]
     Active Substance: FELODIPINE
  9. PANTOPRAZOLE SODIUM [Concomitant]
     Active Substance: PANTOPRAZOLE SODIUM
  10. NASAL SPRAY 12 HOUR [Concomitant]
     Active Substance: OXYMETAZOLINE HYDROCHLORIDE
  11. AMBIEN [Concomitant]
     Active Substance: ZOLPIDEM TARTRATE
  12. IMODIUM A-D [Concomitant]
     Active Substance: LOPERAMIDE HYDROCHLORIDE
  13. AMPICILLIN [Concomitant]
     Active Substance: AMPICILLIN
  14. NICOTINE [Concomitant]
     Active Substance: NICOTINE
  15. IBUPROFEN [Concomitant]
     Active Substance: IBUPROFEN
  16. COLACE [Concomitant]
     Active Substance: DOCUSATE SODIUM

REACTIONS (1)
  - Adverse event [None]
